FAERS Safety Report 6645335-7 (Version None)
Quarter: 2010Q1

REPORT INFORMATION
  Report Type: 
  Country: None (occurrence: None)
  Receive Date: 20100322
  Receipt Date: 20090528
  Transmission Date: 20100710
  Serious: Yes (Death)
  Sender: FDA-Public Use
  Company Number: HU-SANOFI-AVENTIS-F01200801918

PATIENT
  Age: 60 Year
  Sex: Male
  Weight: 78 kg

DRUGS (2)
  1. OXALIPLATIN [Suspect]
     Indication: GASTRIC CANCER
     Dosage: UNIT DOSE: 130 MG/M2
     Route: 041
     Dates: start: 20081208, end: 20081208
  2. DOCETAXEL [Suspect]
     Dosage: UNIT DOSE: 75 MG/M2
     Route: 041
     Dates: start: 20081208, end: 20081208

REACTIONS (4)
  - DIARRHOEA [None]
  - HYPERKALAEMIA [None]
  - HYPONATRAEMIA [None]
  - PULMONARY OEDEMA [None]
